FAERS Safety Report 15585322 (Version 1)
Quarter: 2018Q4

REPORT INFORMATION
  Report Type: Spontaneous
  Country: VE (occurrence: VE)
  Receive Date: 20181102
  Receipt Date: 20181102
  Transmission Date: 20190205
  Serious: Yes (Other)
  Sender: FDA-Public Use
  Company Number: PHHY2018VE112665

PATIENT
  Age: 28 Year
  Sex: Male
  Weight: 98 kg

DRUGS (3)
  1. SANDOSTATIN LAR DEPOT [Suspect]
     Active Substance: OCTREOTIDE ACETATE
     Indication: ACROMEGALY
     Dosage: 40 MG, QMO (20 MG 2 AMPOULES)
     Route: 065
     Dates: start: 201503
  2. CABERGOLINE. [Suspect]
     Active Substance: CABERGOLINE
     Indication: ACROMEGALY
     Dosage: 0.5 MG, TIW
     Route: 048
     Dates: start: 201503
  3. TESTOSTERON [Suspect]
     Active Substance: TESTOSTERONE
     Indication: ACROMEGALY
     Dosage: 1000 MG, Q3MO
     Route: 030
     Dates: start: 201503

REACTIONS (24)
  - Hemianopia heteronymous [Unknown]
  - Sexual activity increased [Unknown]
  - Thyroxine free decreased [Unknown]
  - Headache [Unknown]
  - Blood follicle stimulating hormone decreased [Unknown]
  - Optic nerve disorder [Unknown]
  - Overweight [Unknown]
  - Blood triglycerides increased [Unknown]
  - Blood luteinising hormone decreased [Unknown]
  - Hydrocholecystis [Unknown]
  - Neoplasm progression [Unknown]
  - Cortisol decreased [Unknown]
  - Blood growth hormone increased [Unknown]
  - Urinary bladder polyp [Unknown]
  - Glucocorticoid deficiency [Unknown]
  - Insulin-like growth factor increased [Unknown]
  - Adrenal insufficiency [Unknown]
  - Visual pathway disorder [Unknown]
  - Dyslipidaemia [Unknown]
  - Blood testosterone free decreased [Unknown]
  - Blood testosterone decreased [Unknown]
  - Hypothalamo-pituitary disorder [Unknown]
  - Libido increased [Unknown]
  - Secondary hypogonadism [Unknown]

NARRATIVE: CASE EVENT DATE: 201506
